FAERS Safety Report 18124323 (Version 1)
Quarter: 2020Q3

REPORT INFORMATION
  Report Type: Spontaneous
  Country: US (occurrence: US)
  Receive Date: 20200807
  Receipt Date: 20200807
  Transmission Date: 20201103
  Serious: Yes (Death, Other)
  Sender: FDA-Public Use
  Company Number: US-GILEAD-2020-0489163

PATIENT
  Age: 78 Year
  Sex: Male
  Weight: 78.8 kg

DRUGS (17)
  1. DILTIAZEM. [Concomitant]
     Active Substance: DILTIAZEM
  2. DIGOXIN. [Concomitant]
     Active Substance: DIGOXIN
  3. LEVOTHYROXINE. [Concomitant]
     Active Substance: LEVOTHYROXINE
  4. REMDESIVIR. [Suspect]
     Active Substance: REMDESIVIR
     Dosage: UNK
     Route: 065
     Dates: start: 20200801, end: 20200801
  5. METRONIDAZOLE. [Concomitant]
     Active Substance: METRONIDAZOLE
  6. LANSOPRAZOLE. [Concomitant]
     Active Substance: LANSOPRAZOLE
  7. VANCOMYCIN [Concomitant]
     Active Substance: VANCOMYCIN
  8. AMIODARONE [Concomitant]
     Active Substance: AMIODARONE
  9. METOPROLOL. [Concomitant]
     Active Substance: METOPROLOL
  10. DEXAMETHASONE. [Concomitant]
     Active Substance: DEXAMETHASONE
  11. CEFTRIAXONE. [Concomitant]
     Active Substance: CEFTRIAXONE
  12. PROPOFOL. [Concomitant]
     Active Substance: PROPOFOL
  13. REMDESIVIR. [Suspect]
     Active Substance: REMDESIVIR
     Indication: COVID-19
     Dosage: 200 MG, ONCE
     Route: 065
     Dates: start: 20200731, end: 20200731
  14. FENTANYL. [Concomitant]
     Active Substance: FENTANYL
  15. PIPERACILLIN/TAZOBACTAM [Concomitant]
     Active Substance: PIPERACILLIN SODIUM\TAZOBACTAM SODIUM
  16. LOVENOX HP [Concomitant]
     Active Substance: ENOXAPARIN SODIUM
  17. MORPHINE [Concomitant]
     Active Substance: MORPHINE

REACTIONS (3)
  - Death [Fatal]
  - Renal impairment [Unknown]
  - Creatinine renal clearance decreased [Unknown]

NARRATIVE: CASE EVENT DATE: 20200801
